FAERS Safety Report 4692926-9 (Version None)
Quarter: 2005Q2

REPORT INFORMATION
  Report Type: 
  Country: None (occurrence: None)
  Receive Date: 20050615
  Receipt Date: 20040326
  Transmission Date: 20051028
  Serious: Yes (Disabling)
  Sender: FDA-Public Use
  Company Number: 2004-0006861

PATIENT
  Age: 27 Month
  Sex: Female

DRUGS (28)
  1. DAUNOXOME [Suspect]
     Indication: ACUTE MYELOID LEUKAEMIA
     Dosage: SEE IMAGE
     Dates: start: 20030617, end: 20030617
  2. DAUNOXOME [Suspect]
     Indication: ACUTE MYELOID LEUKAEMIA
     Dosage: SEE IMAGE
     Dates: start: 20030621, end: 20030621
  3. DAUNOXOME [Suspect]
     Indication: ACUTE MYELOID LEUKAEMIA
     Dosage: SEE IMAGE
     Dates: start: 20030623, end: 20030623
  4. DAUNOXOME [Suspect]
     Indication: ACUTE MYELOID LEUKAEMIA
     Dosage: SEE IMAGE
     Dates: start: 20030625, end: 20030625
  5. AMBISOME (AMPHOTERICINE B, LIPOSOME) (INJECTION) [Suspect]
     Dosage: SEE IMAGE
     Route: 042
     Dates: start: 20030623, end: 20030625
  6. AMBISOME (AMPHOTERICINE B, LIPOSOME) (INJECTION) [Suspect]
     Dosage: SEE IMAGE
     Route: 042
     Dates: start: 20030704, end: 20030707
  7. CYTARABINE [Suspect]
     Dosage: SEE IMAGE
     Dates: start: 20030620, end: 20030620
  8. CYTARABINE [Suspect]
     Dosage: SEE IMAGE
     Dates: start: 20030621, end: 20030625
  9. CYTARABINE [Suspect]
     Dosage: SEE IMAGE
     Dates: start: 20030617
  10. NEUPOGEN [Suspect]
     Dosage: SEE IMAGE
     Route: 042
     Dates: start: 20030621, end: 20030625
  11. NEUPOGEN [Suspect]
     Dosage: SEE IMAGE
     Route: 042
     Dates: start: 20030705, end: 20030707
  12. NEUPOGEN [Suspect]
     Dosage: SEE IMAGE
     Route: 042
     Dates: start: 20030617
  13. FLUDARA [Suspect]
     Indication: ACUTE MYELOID LEUKAEMIA
     Dosage: SEE IMAGE
     Route: 042
     Dates: start: 20030621, end: 20030625
  14. FLUDARA [Suspect]
     Indication: ACUTE MYELOID LEUKAEMIA
     Dosage: SEE IMAGE
     Route: 042
     Dates: start: 20030617
  15. BACTRIM [Suspect]
     Dosage: 0.5 DOSAGE FORMS, 3 IN 1 WK, ORAL
     Route: 048
     Dates: start: 20030620, end: 20030707
  16. ONDANSETRON HYDROCHLORIDE [Concomitant]
  17. FORTUM (CEFTAZIDIME PENTAHYDRATE) [Concomitant]
  18. AMIKIN [Concomitant]
  19. VANCOMYCIN [Concomitant]
  20. ACETAMINOPHEN [Concomitant]
  21. FASTURTEC (RASUBURICASE) [Concomitant]
  22. ZOVIRAX [Concomitant]
  23. HEPARIN [Concomitant]
  24. ARTIFICIAL TEARS (ARTIFICIAL TEARS) [Concomitant]
  25. CHIBROCADRON (NEODECADRON) [Concomitant]
  26. POLARAMINE [Concomitant]
  27. PLITICAN (ALIZAPRIDE HYDROCHLORIDE) [Concomitant]
  28. LOXEN (NICARDIPINE HYDRROCHLORIDE) [Concomitant]

REACTIONS (11)
  - BLINDNESS [None]
  - BRADYARRHYTHMIA [None]
  - DYSPEPSIA [None]
  - FEBRILE CONVULSION [None]
  - GRAFT COMPLICATION [None]
  - MENINGEAL DISORDER [None]
  - MULTI-ORGAN FAILURE [None]
  - OPTIC NERVE DISORDER [None]
  - PETIT MAL EPILEPSY [None]
  - RETINAL INFARCTION [None]
  - VASCULITIS [None]
